FAERS Safety Report 19886294 (Version 1)
Quarter: 2021Q3

REPORT INFORMATION
  Report Type: Spontaneous
  Country: US (occurrence: US)
  Receive Date: 20210927
  Receipt Date: 20210927
  Transmission Date: 20211014
  Serious: No
  Sender: FDA-Public Use
  Company Number: US-HIKMA PHARMACEUTICALS USA INC.-US-H14001-21-00655

PATIENT
  Sex: Male

DRUGS (1)
  1. PROPANTHELINE [Suspect]
     Active Substance: PROPANTHELINE
     Indication: HYPERHIDROSIS
     Route: 065

REACTIONS (1)
  - Off label use [Unknown]
